FAERS Safety Report 5392876-9 (Version None)
Quarter: 2007Q3

REPORT INFORMATION
  Report Type: 
  Country: None (occurrence: None)
  Receive Date: 20070721
  Receipt Date: 20070709
  Transmission Date: 20080115
  Serious: Yes (Other)
  Sender: FDA-Public Use
  Company Number: US-PFIZER INC-2007058048

PATIENT
  Sex: Female
  Weight: 50.454 kg

DRUGS (6)
  1. NEURONTIN [Suspect]
     Indication: HERPES ZOSTER
  2. NEURONTIN [Suspect]
     Indication: NEUROPATHY PERIPHERAL
  3. VALSARTAN [Concomitant]
  4. RESTORIL [Concomitant]
  5. ATIVAN [Concomitant]
  6. CALCIUM CHLORIDE [Concomitant]

REACTIONS (4)
  - BONE PAIN [None]
  - BREAST PAIN [None]
  - HERPES ZOSTER [None]
  - PAIN IN EXTREMITY [None]
